FAERS Safety Report 9986263 (Version 2)
Quarter: 2014Q1

REPORT INFORMATION
  Report Type: Report from Study
  Country: PR (occurrence: PR)
  Receive Date: 20140307
  Receipt Date: 20140307
  Transmission Date: 20141002
  Serious: No
  Sender: FDA-Public Use
  Company Number: PR-ABBVIE-13P-131-1079638-00

PATIENT
  Sex: Female

DRUGS (3)
  1. HUMIRA [Suspect]
     Indication: REITER^S SYNDROME
     Route: 058
     Dates: start: 20120906, end: 20121004
  2. PRILOSEC [Concomitant]
     Indication: HIATUS HERNIA
     Route: 048
  3. CARFATE [Concomitant]
     Indication: HIATUS HERNIA
     Dosage: 10ML OR 20ML, 10ML ONE OR TWICE DAILY
     Route: 048

REACTIONS (1)
  - Toothache [Unknown]
